FAERS Safety Report 16895755 (Version 1)
Quarter: 2019Q4

REPORT INFORMATION
  Report Type: Spontaneous
  Country: US (occurrence: US)
  Receive Date: 20191008
  Receipt Date: 20191008
  Transmission Date: 20200122
  Serious: No
  Sender: FDA-Public Use
  Company Number: US-B.BRAUN MEDICAL INC.-2075408

PATIENT
  Age: 62 Year
  Sex: Female

DRUGS (1)
  1. THEOPHYLLINE IN 5% DEXTROSE INJECTIONS USP 0264-9554-10 0264-9558-10 ( [Suspect]
     Active Substance: DEXTROSE MONOHYDRATE\THEOPHYLLINE\THEOPHYLLINE ANHYDROUS
     Route: 065

REACTIONS (1)
  - Urticaria [None]
